FAERS Safety Report 5883703-1 (Version None)
Quarter: 2008Q3

REPORT INFORMATION
  Report Type: 
  Country: None (occurrence: None)
  Receive Date: 20080910
  Receipt Date: 20080827
  Transmission Date: 20090109
  Serious: Yes (Life-Threatening)
  Sender: FDA-Public Use
  Company Number: 004243

PATIENT
  Age: 48 Year
  Sex: Male

DRUGS (5)
  1. BUSULFEX [Suspect]
     Indication: STEM CELL TRANSPLANT
     Dosage: 38.92 ML, DAILY DOSE INTRAVENOUS
     Route: 042
     Dates: start: 20070907, end: 20070910
  2. CYCLOPHOSPHAMIDE [Concomitant]
  3. LENOGRASTIM (LENOGRASTIM) [Concomitant]
  4. METHOTREXATE [Concomitant]
  5. CYCLOSPORINE [Concomitant]

REACTIONS (15)
  - ABDOMINAL PAIN [None]
  - ACUTE GRAFT VERSUS HOST DISEASE [None]
  - ANOREXIA [None]
  - BONE MARROW TRANSPLANT REJECTION [None]
  - CYTOMEGALOVIRUS INFECTION [None]
  - DIARRHOEA [None]
  - ENGRAFT FAILURE [None]
  - HEPATIC FUNCTION ABNORMAL [None]
  - MALAISE [None]
  - NAUSEA [None]
  - PNEUMONIA [None]
  - PSEUDOMONAL BACTERAEMIA [None]
  - STAPHYLOCOCCAL BACTERAEMIA [None]
  - VIRAL HAEMORRHAGIC CYSTITIS [None]
  - VOMITING [None]
